FAERS Safety Report 12901943 (Version 2)
Quarter: 2016Q4

REPORT INFORMATION
  Report Type: Spontaneous
  Country: US (occurrence: US)
  Receive Date: 20161102
  Receipt Date: 20161118
  Transmission Date: 20170207
  Serious: No
  Sender: FDA-Public Use
  Company Number: US-009507513-1610USA013292

PATIENT
  Age: 20 Year
  Sex: Female
  Weight: 126.53 kg

DRUGS (1)
  1. NEXPLANON [Suspect]
     Active Substance: ETONOGESTREL
     Indication: CONTRACEPTION
     Dosage: 68 MG/THREE YEARS
     Route: 059
     Dates: start: 201503, end: 20161024

REACTIONS (4)
  - Weight increased [Unknown]
  - Device breakage [Recovered/Resolved]
  - Implant site scar [Unknown]
  - Device kink [Recovered/Resolved]
